FAERS Safety Report 21083648 (Version 1)
Quarter: 2022Q3

REPORT INFORMATION
  Report Type: Spontaneous
  Country: US (occurrence: None)
  Receive Date: 20220714
  Receipt Date: 20220714
  Transmission Date: 20221027
  Serious: No
  Sender: FDA-Public Use
  Company Number: None

PATIENT
  Age: 79 Year
  Sex: Male
  Weight: 94 kg

DRUGS (1)
  1. CHOLECALCIFEROL [Suspect]
     Active Substance: CHOLECALCIFEROL
     Dosage: FREQUENCY : DAILY;?
     Route: 048
     Dates: start: 20220210

REACTIONS (6)
  - Flushing [None]
  - Feeling hot [None]
  - Erythema [None]
  - Pruritus [None]
  - Urticaria [None]
  - Pruritus [None]

NARRATIVE: CASE EVENT DATE: 20220422
